FAERS Safety Report 19001069 (Version 1)
Quarter: 2021Q1

REPORT INFORMATION
  Report Type: Report from Study
  Country: US (occurrence: US)
  Receive Date: 20210312
  Receipt Date: 20210312
  Transmission Date: 20210420
  Serious: Yes (Death, Other)
  Sender: FDA-Public Use
  Company Number: NVSC2021US056565

PATIENT
  Age: 65 Year
  Sex: Male

DRUGS (5)
  1. KYMRIAH [Suspect]
     Active Substance: TISAGENLECLEUCEL
     Indication: DIFFUSE LARGE B-CELL LYMPHOMA
  2. KYMRIAH [Suspect]
     Active Substance: TISAGENLECLEUCEL
     Indication: HODGKIN^S DISEASE
  3. CYCLOPHOSPHAMIDE. [Concomitant]
     Active Substance: CYCLOPHOSPHAMIDE
     Indication: CHEMOTHERAPY
     Dosage: UNK
     Route: 065
  4. KYMRIAH [Suspect]
     Active Substance: TISAGENLECLEUCEL
     Indication: B-CELL LYMPHOMA
     Dosage: UNK
     Route: 042
     Dates: start: 20200406
  5. FLUDARABINE [Concomitant]
     Active Substance: FLUDARABINE PHOSPHATE
     Indication: CHEMOTHERAPY
     Dosage: UNK
     Route: 065

REACTIONS (10)
  - Hodgkin^s disease recurrent [Unknown]
  - Neutrophil count decreased [Recovered/Resolved]
  - Thrombocytopenia [Unknown]
  - Malignant neoplasm progression [Unknown]
  - Death [Fatal]
  - Cytopenia [Unknown]
  - B-cell lymphoma recurrent [Unknown]
  - Diffuse large B-cell lymphoma recurrent [Unknown]
  - Fungal infection [Unknown]
  - Platelet count decreased [Not Recovered/Not Resolved]
